FAERS Safety Report 20135134 (Version 2)
Quarter: 2021Q4

REPORT INFORMATION
  Report Type: Report from Study
  Country: None (occurrence: US)
  Receive Date: 20211201
  Receipt Date: 20211210
  Transmission Date: 20220303
  Serious: Yes (Other)
  Sender: FDA-Public Use
  Company Number: US-AKCEA THERAPEUTICS, INC.-2021IS001685

PATIENT
  Age: 70 Year
  Sex: Female
  Weight: 65 kg

DRUGS (38)
  1. TEGSEDI [Suspect]
     Active Substance: INOTERSEN SODIUM
     Indication: Hereditary neuropathic amyloidosis
     Route: 058
     Dates: start: 20190215
  2. DEVICE [Suspect]
     Active Substance: DEVICE
  3. TEGSEDI [Suspect]
     Active Substance: INOTERSEN SODIUM
     Route: 058
  4. FOLIC ACID\IRON [Concomitant]
     Active Substance: FOLIC ACID\IRON
     Route: 065
  5. CALCIUM [Concomitant]
     Active Substance: CALCIUM
     Route: 048
  6. CALCIUM [Concomitant]
     Active Substance: CALCIUM
     Route: 048
  7. DOLOBID [Concomitant]
     Active Substance: DIFLUNISAL
     Route: 065
     Dates: start: 20170928
  8. LIPITOR [Concomitant]
     Active Substance: ATORVASTATIN CALCIUM
     Route: 048
     Dates: start: 20210817
  9. TOCOPHEROL [Concomitant]
     Active Substance: TOCOPHEROL
     Route: 065
  10. ERGOCALCIFEROL [Concomitant]
     Active Substance: ERGOCALCIFEROL
     Route: 065
  11. ERGOCALCIFEROL [Concomitant]
     Active Substance: ERGOCALCIFEROL
     Route: 048
  12. GABAPENTIN [Concomitant]
     Active Substance: GABAPENTIN
     Route: 065
  13. ZOLOFT [Concomitant]
     Active Substance: SERTRALINE HYDROCHLORIDE
     Route: 048
     Dates: start: 20210810
  14. LISINOPRIL [Concomitant]
     Active Substance: LISINOPRIL
     Route: 065
  15. TUMS CHEWIES [Concomitant]
     Route: 065
     Dates: start: 20190110
  16. CALCIUM LACTATE [Concomitant]
     Active Substance: CALCIUM LACTATE
     Route: 065
  17. KLONOPIN [Concomitant]
     Active Substance: CLONAZEPAM
  18. KLONOPIN [Concomitant]
     Active Substance: CLONAZEPAM
     Route: 048
  19. KLONOPIN [Concomitant]
     Active Substance: CLONAZEPAM
     Route: 048
     Dates: start: 20210920
  20. DEXILANT [Concomitant]
     Active Substance: DEXLANSOPRAZOLE
     Route: 065
     Dates: start: 20170804
  21. ESTRACE [Concomitant]
     Active Substance: ESTRADIOL
     Route: 065
     Dates: start: 20210317
  22. NEURONTIN [Concomitant]
     Active Substance: GABAPENTIN
     Route: 048
     Dates: start: 20210918
  23. GARLIC [Concomitant]
     Active Substance: GARLIC
     Route: 048
  24. ATIVAN [Concomitant]
     Active Substance: LORAZEPAM
     Route: 065
  25. HIPREX /00054403/ [Concomitant]
     Route: 048
     Dates: start: 20210920
  26. TOPROL XL [Concomitant]
     Active Substance: METOPROLOL SUCCINATE
     Route: 048
     Dates: start: 20210816
  27. MACRODANTIN [Concomitant]
     Active Substance: NITROFURANTOIN
     Route: 065
  28. FISH OIL [Concomitant]
     Active Substance: FISH OIL
     Route: 048
  29. PROTONIX [Concomitant]
     Active Substance: PANTOPRAZOLE SODIUM
     Route: 048
  30. POTASSIUM GLUCONATE [Concomitant]
     Active Substance: POTASSIUM GLUCONATE
     Route: 048
  31. PROBIOTICS NOS [Concomitant]
     Active Substance: PROBIOTICS NOS
     Route: 048
  32. PHENERGAN [Concomitant]
     Active Substance: PROMETHAZINE HYDROCHLORIDE
     Route: 065
  33. BACTRIM DS [Concomitant]
     Active Substance: SULFAMETHOXAZOLE\TRIMETHOPRIM
     Route: 065
  34. TOBRADEX [Concomitant]
     Active Substance: DEXAMETHASONE\TOBRAMYCIN
     Route: 065
  35. HERBALS\TURMERIC [Concomitant]
     Active Substance: HERBALS\TURMERIC
     Route: 048
  36. HERBALS\TURMERIC [Concomitant]
     Active Substance: HERBALS\TURMERIC
     Route: 048
  37. RETINOL [Concomitant]
     Active Substance: RETINOL
     Route: 048
  38. MONODOX /00055701/ [Concomitant]
     Route: 048
     Dates: start: 20210819

REACTIONS (20)
  - Chronic kidney disease [Unknown]
  - Renal amyloidosis [Unknown]
  - Blood creatinine increased [Unknown]
  - Glomerular filtration rate decreased [Unknown]
  - Urine protein/creatinine ratio increased [Unknown]
  - Platelet count decreased [Unknown]
  - Urine leukocyte esterase positive [Unknown]
  - White blood cells urine positive [Unknown]
  - Urinary occult blood positive [Unknown]
  - Urine abnormality [Unknown]
  - Urinary tract infection [Unknown]
  - Decreased activity [Unknown]
  - Appetite disorder [Unknown]
  - Fatigue [Unknown]
  - Visual impairment [Unknown]
  - Abdominal pain [Unknown]
  - Back pain [Unknown]
  - Myalgia [Unknown]
  - Asthenia [Unknown]
  - Haemoglobin decreased [Recovered/Resolved]

NARRATIVE: CASE EVENT DATE: 20210413
